FAERS Safety Report 21098427 (Version 1)
Quarter: 2022Q3

REPORT INFORMATION
  Report Type: Spontaneous
  Country: US (occurrence: US)
  Receive Date: 20220719
  Receipt Date: 20220719
  Transmission Date: 20221026
  Serious: No
  Sender: FDA-Public Use
  Company Number: US-NATCOUSA-2022-NATCOUSA-000037

PATIENT
  Age: 72 Year
  Sex: Female

DRUGS (2)
  1. LETROZOLE [Suspect]
     Active Substance: LETROZOLE
     Indication: Breast cancer stage IV
  2. IBRANCE [Concomitant]
     Active Substance: PALBOCICLIB
     Indication: Breast cancer stage IV

REACTIONS (1)
  - Alopecia [Unknown]
